FAERS Safety Report 5002027-8 (Version None)
Quarter: 2006Q2

REPORT INFORMATION
  Report Type: 
  Country: None (occurrence: None)
  Receive Date: 20060511
  Receipt Date: 20060511
  Transmission Date: 20061013
  Serious: No
  Sender: FDA-Public Use
  Company Number: None

PATIENT
  Age: 75 Year
  Sex: Female
  Weight: 65.318 kg

DRUGS (22)
  1. VESANOID [Suspect]
     Indication: ACUTE PROMYELOCYTIC LEUKAEMIA
     Dosage: 40 MG Q AM , 30 MG Q PM
     Dates: start: 20060426, end: 20060508
  2. LASIX [Concomitant]
  3. DILTIAZEM [Concomitant]
  4. LANOXIN [Concomitant]
  5. ALLOPURINOL [Concomitant]
  6. LEVAQUIN [Concomitant]
  7. DIFLUCAN [Concomitant]
  8. ZOFRABN [Concomitant]
  9. VALACYCLOVIR [Concomitant]
  10. ZIAC [Concomitant]
  11. SS INSULIN [Concomitant]
  12. BACTROBAN [Concomitant]
  13. MAXIPIME [Concomitant]
  14. VANCOMYCIN [Concomitant]
  15. TPN [Concomitant]
  16. AMBIEN [Concomitant]
  17. APAP TAB [Concomitant]
  18. LORTAB [Concomitant]
  19. ANZEMET [Concomitant]
  20. PRENERGAN [Concomitant]
  21. DEMEROL [Concomitant]
  22. DECADRON SRC [Concomitant]

REACTIONS (2)
  - HEART RATE IRREGULAR [None]
  - PULMONARY OEDEMA [None]
